FAERS Safety Report 8077220-0 (Version None)
Quarter: 2012Q1

REPORT INFORMATION
  Report Type: 
  Country: None (occurrence: None)
  Receive Date: 20120127
  Receipt Date: 20120120
  Transmission Date: 20120608
  Serious: Yes (Other)
  Sender: FDA-Public Use
  Company Number: US-ABBOTT-12P-163-0895431-00

PATIENT
  Sex: Female
  Weight: 118.04 kg

DRUGS (3)
  1. HUMIRA [Suspect]
     Indication: RHEUMATOID ARTHRITIS
     Route: 058
     Dates: start: 20090101, end: 20110821
  2. HUMIRA [Suspect]
     Indication: PSORIATIC ARTHROPATHY
     Route: 058
     Dates: start: 20080101, end: 20090101
  3. HUMIRA [Suspect]
     Route: 058
     Dates: start: 20120113

REACTIONS (6)
  - ENDOMETRIAL HYPERPLASIA [None]
  - DRUG INEFFECTIVE [None]
  - IMPAIRED HEALING [None]
  - KNEE ARTHROPLASTY [None]
  - ENTEROBACTER INFECTION [None]
  - TUBERCULIN TEST POSITIVE [None]
